FAERS Safety Report 24655980 (Version 1)
Quarter: 2024Q4

REPORT INFORMATION
  Report Type: Spontaneous
  Country: US (occurrence: US)
  Receive Date: 20241124
  Receipt Date: 20241124
  Transmission Date: 20250114
  Serious: No
  Sender: SANOFI AVENTIS
  Company Number: US-SA-2024SA334275

PATIENT
  Age: 12 Year
  Sex: Female

DRUGS (2)
  1. TZIELD [Suspect]
     Active Substance: TEPLIZUMAB-MZWV
     Dosage: 125 UG, QD
     Route: 065
  2. TZIELD [Suspect]
     Active Substance: TEPLIZUMAB-MZWV
     Dosage: 2200 UG, QD
     Route: 065

REACTIONS (6)
  - Lymphatic disorder [Unknown]
  - Skin swelling [Recovered/Resolved]
  - Chest pain [Unknown]
  - Catheter site discolouration [Unknown]
  - Pyrexia [Recovered/Resolved]
  - Rash erythematous [Recovered/Resolved]

NARRATIVE: CASE EVENT DATE: 20241101
